FAERS Safety Report 14446030 (Version 2)
Quarter: 2018Q1

REPORT INFORMATION
  Report Type: Spontaneous
  Country: US (occurrence: US)
  Receive Date: 20180126
  Receipt Date: 20180202
  Transmission Date: 20180509
  Serious: Yes (Other)
  Sender: FDA-Public Use
  Company Number: US-009507513-1801USA008930

PATIENT
  Age: 60 Year
  Sex: Female

DRUGS (1)
  1. BELSOMRA [Suspect]
     Active Substance: SUVOREXANT
     Indication: SLEEP DISORDER
     Dosage: 20 MG, FREQUENCY NOT REPORTED
     Route: 048

REACTIONS (10)
  - Gastric disorder [Not Recovered/Not Resolved]
  - Irritability [Not Recovered/Not Resolved]
  - Frustration tolerance decreased [Not Recovered/Not Resolved]
  - Malaise [Not Recovered/Not Resolved]
  - Peptic ulcer haemorrhage [Unknown]
  - Nasopharyngitis [Not Recovered/Not Resolved]
  - Product container issue [Unknown]
  - Fatigue [Not Recovered/Not Resolved]
  - Drug ineffective [Not Recovered/Not Resolved]
  - Physical product label issue [Unknown]

NARRATIVE: CASE EVENT DATE: 2018
